FAERS Safety Report 8932729 (Version 1)
Quarter: 2013Q1

REPORT INFORMATION
  Report Type: Spontaneous
  Country: US (occurrence: None)
  Receive Date: 20121126
  Receipt Date: 20121126
  Transmission Date: 20140127
  Serious: Yes (Hospitalization)
  Sender: FDA-Public Use
  Company Number: None

PATIENT
  Age: 71 Year
  Sex: Male

DRUGS (2)
  1. CETUXIMAB [Suspect]
     Dosage: 415 MG WEEKLY IV
     Route: 042
     Dates: start: 20120216
  2. RAD001 [Suspect]
     Dosage: 2.5MG DAILY ORAL
     Route: 048
     Dates: start: 20120216

REACTIONS (1)
  - Pneumonia aspiration [None]
